FAERS Safety Report 24871944 (Version 4)
Quarter: 2025Q2

REPORT INFORMATION
  Report Type: Spontaneous
  Country: SE (occurrence: SE)
  Receive Date: 20250122
  Receipt Date: 20250516
  Transmission Date: 20250717
  Serious: Yes (Hospitalization, Disabling, Other)
  Sender: AUROBINDO
  Company Number: SE-SEMPA-2025-000106

PATIENT
  Age: 47 Year
  Sex: Female
  Weight: 65 kg

DRUGS (4)
  1. SERTRALINE HYDROCHLORIDE [Suspect]
     Active Substance: SERTRALINE HYDROCHLORIDE
     Indication: Depression
     Dosage: 100 MILLIGRAM, ONCE A DAY
     Route: 048
     Dates: start: 1997
  2. SERTRALINE HYDROCHLORIDE [Suspect]
     Active Substance: SERTRALINE HYDROCHLORIDE
     Indication: Anxiety
     Dosage: 200 MILLIGRAM, ONCE A DAY (2 TABLETS DAILY)
     Route: 065
     Dates: start: 2010, end: 20240417
  3. SERTRALINE [Suspect]
     Active Substance: SERTRALINE HYDROCHLORIDE
     Indication: Anxiety
     Dosage: 100 MILLIGRAM, ONCE A DAY
     Route: 065
     Dates: start: 1997
  4. SERTRALINE [Suspect]
     Active Substance: SERTRALINE HYDROCHLORIDE
     Indication: Depression
     Route: 065
     Dates: start: 2010

REACTIONS (2)
  - Multiple acyl-coenzyme A dehydrogenase deficiency [Not Recovered/Not Resolved]
  - Product use in unapproved indication [Unknown]

NARRATIVE: CASE EVENT DATE: 20130101
